FAERS Safety Report 6026387-4 (Version None)
Quarter: 2009Q1

REPORT INFORMATION
  Report Type: 
  Country: None (occurrence: None)
  Receive Date: 20090102
  Receipt Date: 20081223
  Transmission Date: 20090719
  Serious: Yes (Hospitalization, Disabling, Other)
  Sender: FDA-Public Use
  Company Number: PHHY2008FR31066

PATIENT
  Sex: Female
  Weight: 80 kg

DRUGS (5)
  1. ZOMETA [Suspect]
     Indication: MULTIPLE MYELOMA
     Dosage: 4 MG/28 DAYS
     Route: 042
     Dates: start: 20081007, end: 20081013
  2. ZOMETA [Suspect]
     Indication: METASTASES TO BONE
  3. REVLIMID [Suspect]
     Indication: MULTIPLE MYELOMA
     Dosage: 15 MG DAILY
     Dates: end: 20081013
  4. ALDACTAZINE [Suspect]
     Indication: HYPERTENSION
     Dosage: UNK
     Dates: end: 20081013
  5. FOSAVANCE [Suspect]
     Indication: OSTEOPOROSIS
     Dosage: UNK
     Dates: end: 20081013

REACTIONS (6)
  - ANURIA [None]
  - BLOOD CREATININE INCREASED [None]
  - DIALYSIS [None]
  - PROTEIN TOTAL INCREASED [None]
  - RENAL IMPAIRMENT [None]
  - RENAL TUBULAR NECROSIS [None]
